FAERS Safety Report 23942943 (Version 1)
Quarter: 2024Q2

REPORT INFORMATION
  Report Type: Report from Study
  Country: FR (occurrence: FR)
  Receive Date: 20240605
  Receipt Date: 20240605
  Transmission Date: 20240716
  Serious: Yes (Hospitalization)
  Sender: FDA-Public Use
  Company Number: FR-TAKEDA-2024TUS054267

PATIENT
  Age: 22 Year
  Sex: Female

DRUGS (10)
  1. TEDUGLUTIDE [Suspect]
     Active Substance: TEDUGLUTIDE
     Indication: Short-bowel syndrome
     Dosage: 2.6 MILLIGRAM, QD
     Route: 042
     Dates: start: 20190821, end: 20201012
  2. TEDUGLUTIDE [Suspect]
     Active Substance: TEDUGLUTIDE
     Indication: Short-bowel syndrome
     Dosage: 2.6 MILLIGRAM, QD
     Route: 042
     Dates: start: 20190821, end: 20201012
  3. TEDUGLUTIDE [Suspect]
     Active Substance: TEDUGLUTIDE
     Indication: Short-bowel syndrome
     Dosage: 2.6 MILLIGRAM, QD
     Route: 042
     Dates: start: 20190821, end: 20201012
  4. TEDUGLUTIDE [Suspect]
     Active Substance: TEDUGLUTIDE
     Indication: Short-bowel syndrome
     Dosage: 2.6 MILLIGRAM, QD
     Route: 042
     Dates: start: 20190821, end: 20201012
  5. TEDUGLUTIDE [Suspect]
     Active Substance: TEDUGLUTIDE
     Dosage: 2.8 MILLIGRAM, QD
     Route: 042
     Dates: start: 20201013
  6. TEDUGLUTIDE [Suspect]
     Active Substance: TEDUGLUTIDE
     Dosage: 2.8 MILLIGRAM, QD
     Route: 042
     Dates: start: 20201013
  7. TEDUGLUTIDE [Suspect]
     Active Substance: TEDUGLUTIDE
     Dosage: 2.8 MILLIGRAM, QD
     Route: 042
     Dates: start: 20201013
  8. TEDUGLUTIDE [Suspect]
     Active Substance: TEDUGLUTIDE
     Dosage: 2.8 MILLIGRAM, QD
     Route: 042
     Dates: start: 20201013
  9. FENTICONAZOLE [Concomitant]
     Active Substance: FENTICONAZOLE
     Indication: Fungal infection
     Dosage: 1 DOSAGE FORM, BID
     Route: 065
     Dates: start: 202104, end: 202105
  10. VIMPAT [Concomitant]
     Active Substance: LACOSAMIDE
     Indication: Partial seizures
     Dosage: 100 MILLIGRAM, BID
     Route: 048
     Dates: start: 202102

REACTIONS (5)
  - Device use issue [Recovered/Resolved]
  - Vitamin D deficiency [Recovered/Resolved]
  - Zinc deficiency [Recovered/Resolved]
  - Copper deficiency [Recovered/Resolved]
  - Vitamin A deficiency [Recovered/Resolved]

NARRATIVE: CASE EVENT DATE: 20210411
